FAERS Safety Report 12156251 (Version 2)
Quarter: 2016Q2

REPORT INFORMATION
  Report Type: Other
  Country: ES (occurrence: ES)
  Receive Date: 20160307
  Receipt Date: 20160404
  Transmission Date: 20160815
  Serious: Yes (Other)
  Sender: FDA-Public Use
  Company Number: ES-MYLANLABS-2016M1009171

PATIENT

DRUGS (1)
  1. TACROLIMUS MYLAN 0,5 MG C?PSULAS DURAS EFG [Suspect]
     Active Substance: TACROLIMUS
     Indication: LIVER TRANSPLANT
     Dosage: 0.5 MG, QD
     Route: 048
     Dates: start: 20151225, end: 20160125

REACTIONS (5)
  - Complications of transplanted liver [Unknown]
  - Liver transplant rejection [Unknown]
  - Product substitution issue [Unknown]
  - Cholestasis [Unknown]
  - Immunosuppressant drug level decreased [Unknown]

NARRATIVE: CASE EVENT DATE: 20160125
